FAERS Safety Report 4586910-3 (Version None)
Quarter: 2005Q1

REPORT INFORMATION
  Report Type: 
  Country: None (occurrence: None)
  Receive Date: 20050216
  Receipt Date: 20050216
  Transmission Date: 20050727
  Serious: No
  Sender: FDA-Public Use
  Company Number: None

PATIENT
  Sex: Female
  Weight: 63.5036 kg

DRUGS (1)
  1. PENICILLAMINE [Suspect]
     Indication: HEPATO-LENTICULAR DEGENERATION

REACTIONS (6)
  - ARTHRITIS [None]
  - ARTHROPATHY [None]
  - BONE DISORDER [None]
  - ELASTOSIS PERFORANS [None]
  - PROGERIA [None]
  - SCAR [None]
